FAERS Safety Report 9157519 (Version 1)
Quarter: 2013Q1

REPORT INFORMATION
  Report Type: Spontaneous
  Country: US (occurrence: None)
  Receive Date: 20130311
  Receipt Date: 20130311
  Transmission Date: 20140127
  Serious: Yes (Hospitalization)
  Sender: FDA-Public Use
  Company Number: None

PATIENT
  Age: 58 Year
  Sex: Male
  Weight: 78.01 kg

DRUGS (11)
  1. BEVACIZUMAB [Suspect]
     Indication: GLIOBLASTOMA MULTIFORME
     Dosage: 10 MG/KG- 916MG Q 2 WEEKS IV
     Route: 042
     Dates: start: 20120402, end: 20121204
  2. TEMOZOLOMIDE [Concomitant]
  3. ZOFRAN [Concomitant]
  4. TYLENOL PM EXTRA STRENGTH [Concomitant]
  5. COLACE [Concomitant]
  6. LEXAPRO [Concomitant]
  7. HCTZ [Concomitant]
  8. LABETALOL [Concomitant]
  9. KEPPRA [Concomitant]
  10. PRILOSEC [Concomitant]
  11. SIMVASTATIN [Concomitant]

REACTIONS (9)
  - Influenza like illness [None]
  - Pyrexia [None]
  - Asthenia [None]
  - Fatigue [None]
  - Syncope [None]
  - Decreased appetite [None]
  - Weight decreased [None]
  - Tumour haemorrhage [None]
  - Radiation injury [None]
